FAERS Safety Report 4697739-X (Version None)
Quarter: 2005Q2

REPORT INFORMATION
  Report Type: 
  Country: None (occurrence: None)
  Receive Date: 20050119
  Receipt Date: 20050119
  Transmission Date: 20051028
  Serious: No
  Sender: FDA-Public Use
  Company Number: None

PATIENT
  Sex: Male
  Weight: 99.3377 kg

DRUGS (1)
  1. MYSOLINE [Suspect]
     Indication: TREMOR
     Dosage: 50 MG ORALLY  3X Q DAY
     Route: 048

REACTIONS (3)
  - DRUG EFFECT DECREASED [None]
  - THERAPEUTIC RESPONSE UNEXPECTED WITH DRUG SUBSTITUTION [None]
  - TREMOR [None]
